FAERS Safety Report 18517453 (Version 1)
Quarter: 2020Q4

REPORT INFORMATION
  Report Type: Spontaneous
  Country: US (occurrence: US)
  Receive Date: 20201118
  Receipt Date: 20201118
  Transmission Date: 20210114
  Serious: Yes (Other)
  Sender: FDA-Public Use
  Company Number: US-PFIZER INC-2020454275

PATIENT
  Sex: Female

DRUGS (3)
  1. MORPHINE SULFATE. [Concomitant]
     Active Substance: MORPHINE SULFATE
     Indication: PAIN
     Dosage: UNK (EVERY 12 HOURS)
  2. IBRANCE [Suspect]
     Active Substance: PALBOCICLIB
     Indication: BREAST CANCER METASTATIC
     Dosage: UNK UNK, CYCLIC
     Dates: start: 20201030
  3. FULVESTRANT. [Suspect]
     Active Substance: FULVESTRANT
     Indication: BREAST CANCER METASTATIC
     Dosage: UNK

REACTIONS (8)
  - Weight decreased [Unknown]
  - Taste disorder [Unknown]
  - Cancer pain [Unknown]
  - Back pain [Unknown]
  - Asthenia [Unknown]
  - Speech disorder [Unknown]
  - Fatigue [Unknown]
  - Decreased appetite [Unknown]
